FAERS Safety Report 15633148 (Version 3)
Quarter: 2018Q4

REPORT INFORMATION
  Report Type: Spontaneous
  Country: US (occurrence: US)
  Receive Date: 20181119
  Receipt Date: 20181219
  Transmission Date: 20190205
  Serious: No
  Sender: FDA-Public Use
  Company Number: US-PFIZER INC-2018456456

PATIENT
  Age: 85 Year
  Sex: Male

DRUGS (2)
  1. SILDENAFIL CITRATE. [Suspect]
     Active Substance: SILDENAFIL CITRATE
     Indication: EHLERS-DANLOS SYNDROME
     Dosage: 100 MG, AS NEEDED (TAKE 5 TABLETS BY MOUTH ONCE DAILY)
     Route: 048
  2. SILDENAFIL CITRATE. [Suspect]
     Active Substance: SILDENAFIL CITRATE
     Dosage: 100 MG, 1X/DAY
     Dates: end: 20011104

REACTIONS (3)
  - Product use issue [Recovered/Resolved]
  - Drug ineffective [Recovered/Resolved]
  - Product use in unapproved indication [Unknown]
